FAERS Safety Report 11493139 (Version 1)
Quarter: 2015Q3

REPORT INFORMATION
  Report Type: Spontaneous
  Country: US (occurrence: None)
  Receive Date: 20150910
  Receipt Date: 20150910
  Transmission Date: 20151125
  Serious: Yes (Other)
  Sender: FDA-Public Use
  Company Number: None

PATIENT
  Age: 32 Year
  Sex: Male
  Weight: 83.92 kg

DRUGS (1)
  1. IMIQUIMOD. [Suspect]
     Active Substance: IMIQUIMOD
     Indication: PENILE WART
     Dosage: 1 PACKET  3 TIMS WEEKLY  APPLIED TO A SURFACE, USUALLY THE SKIN
     Route: 061
     Dates: start: 20150829, end: 20150905

REACTIONS (7)
  - Application site vesicles [None]
  - Influenza like illness [None]
  - Application site discharge [None]
  - Application site swelling [None]
  - Application site exfoliation [None]
  - Chest pain [None]
  - Application site erythema [None]

NARRATIVE: CASE EVENT DATE: 20150905
